FAERS Safety Report 8846715 (Version 2)
Quarter: 2015Q2

REPORT INFORMATION
  Report Type: Report from Study
  Country: US (occurrence: US)
  Receive Date: 20121017
  Receipt Date: 20150612
  Transmission Date: 20150821
  Serious: Yes (Death)
  Sender: FDA-Public Use
  Company Number: US-ROCHE-1132180

PATIENT
  Sex: Female

DRUGS (5)
  1. XELODA [Suspect]
     Active Substance: CAPECITABINE
     Indication: BILE DUCT CANCER
  2. XELODA [Suspect]
     Active Substance: CAPECITABINE
     Indication: HEPATOBILIARY CANCER
     Dosage: (500MG) 3 TABLETS 2 TIMES PER DAY FOR 14 DAYS
     Route: 048
  3. CISPLATIN. [Concomitant]
     Active Substance: CISPLATIN
  4. XELODA [Suspect]
     Active Substance: CAPECITABINE
     Indication: CHOLANGIOCARCINOMA
  5. GEMZAR [Concomitant]
     Active Substance: GEMCITABINE HYDROCHLORIDE

REACTIONS (2)
  - Off label use [Unknown]
  - Death [Fatal]
